FAERS Safety Report 16592394 (Version 1)
Quarter: 2019Q3

REPORT INFORMATION
  Report Type: Spontaneous
  Country: US (occurrence: US)
  Receive Date: 20190718
  Receipt Date: 20190718
  Transmission Date: 20191004
  Serious: No
  Sender: FDA-Public Use
  Company Number: US-NOVOPROD-656552

PATIENT
  Sex: Female

DRUGS (1)
  1. FIASP 3ML PDS290 [Suspect]
     Active Substance: INSULIN ASPART
     Indication: PRODUCT USED FOR UNKNOWN INDICATION
     Dosage: 30 IU
     Route: 058
     Dates: start: 20190321, end: 20190322

REACTIONS (3)
  - Tremor [Recovered/Resolved]
  - Visual impairment [Recovered/Resolved]
  - Hypertension [Recovered/Resolved]
